FAERS Safety Report 5095935-3 (Version None)
Quarter: 2006Q3

REPORT INFORMATION
  Report Type: 
  Country: None (occurrence: None)
  Receive Date: 20060731
  Receipt Date: 20060421
  Transmission Date: 20061208
  Serious: No
  Sender: FDA-Public Use
  Company Number: 2006PV012533

PATIENT
  Age: 49 Year
  Sex: Male
  Weight: 128.8216 kg

DRUGS (8)
  1. BYETTA [Suspect]
     Indication: DIABETES MELLITUS NON-INSULIN-DEPENDENT
     Dosage: SEE IMAGE
     Route: 058
     Dates: start: 20060110, end: 20060209
  2. BYETTA [Suspect]
     Indication: DIABETES MELLITUS NON-INSULIN-DEPENDENT
     Dosage: SEE IMAGE
     Route: 058
     Dates: start: 20060209
  3. ADVAIR DISKUS 100/50 [Concomitant]
  4. NAPROXEN [Concomitant]
  5. LASIX [Concomitant]
  6. ZOCOR [Concomitant]
  7. POTASSIUM CHLORIDE [Concomitant]
  8. METFORMIN HCL [Concomitant]

REACTIONS (2)
  - LEUKOCYTOSIS [None]
  - WEIGHT DECREASED [None]
